FAERS Safety Report 6145076-9 (Version None)
Quarter: 2009Q2

REPORT INFORMATION
  Report Type: 
  Country: None (occurrence: None)
  Receive Date: 20090401
  Receipt Date: 20090401
  Transmission Date: 20091009
  Serious: Yes (Hospitalization)
  Sender: FDA-Public Use
  Company Number: None

PATIENT
  Age: 46 Year
  Sex: Female
  Weight: 74 kg

DRUGS (4)
  1. CLONIDINE [Suspect]
     Indication: HOT FLUSH
     Dosage: 0.2MG/DAY QWEEK TOP
     Route: 061
     Dates: start: 20081229, end: 20090107
  2. CLONIDINE [Suspect]
     Indication: MENOPAUSAL SYMPTOMS
     Dosage: 0.2MG/DAY QWEEK TOP
     Route: 061
     Dates: start: 20081229, end: 20090107
  3. ASPIRIN [Concomitant]
  4. PAROXETINE HCL [Concomitant]

REACTIONS (3)
  - MYOCARDIAL ISCHAEMIA [None]
  - ORTHOSTATIC HYPOTENSION [None]
  - SYNCOPE [None]
